FAERS Safety Report 5038665-6 (Version None)
Quarter: 2006Q2

REPORT INFORMATION
  Report Type: 
  Country: None (occurrence: None)
  Receive Date: 20060627
  Receipt Date: 20060627
  Transmission Date: 20061013
  Serious: Yes (Death)
  Sender: FDA-Public Use
  Company Number: None

PATIENT
  Age: 21 Year
  Sex: Female
  Weight: 52.1637 kg

DRUGS (4)
  1. PLAN B [Suspect]
     Indication: POST COITAL CONTRACEPTION
     Dosage: 0.75 MG ONE TIME USE ORAL
     Route: 048
     Dates: start: 20060228
  2. PLAN B [Suspect]
     Indication: POST COITAL CONTRACEPTION
     Dosage: 0.75 MG ONE TIME USE ORAL
     Route: 048
     Dates: start: 20060329
  3. ORTHO TRICYCLEN LOW [Concomitant]
     Dosage: AGE 16 TO EVENT DATE
  4. TYLENOL COLD AND SINUS [Concomitant]

REACTIONS (6)
  - CHILLS [None]
  - HEADACHE [None]
  - MENORRHAGIA [None]
  - PELVIC INFLAMMATORY DISEASE [None]
  - PELVIC PAIN [None]
  - PYREXIA [None]
